FAERS Safety Report 5954186-8 (Version None)
Quarter: 2008Q4

REPORT INFORMATION
  Report Type: 
  Country: None (occurrence: None)
  Receive Date: 20081117
  Receipt Date: 20081106
  Transmission Date: 20090506
  Serious: Yes (Hospitalization, Other)
  Sender: FDA-Public Use
  Company Number: US-JNJFOC-20081000824

PATIENT
  Sex: Female

DRUGS (2)
  1. REMICADE [Suspect]
     Dosage: 38TH INFUSION  REPORTED DOSE OF 9=10 MG/KG
     Route: 042
  2. REMICADE [Suspect]
     Indication: PSORIATIC ARTHROPATHY
     Dosage: INFUSIONS 1 TO 37.
     Route: 042

REACTIONS (5)
  - ELECTROCARDIOGRAM CHANGE [None]
  - HYPOTENSION [None]
  - HYPOXIA [None]
  - INFUSION RELATED REACTION [None]
  - URTICARIA [None]
